FAERS Safety Report 5257941-5 (Version None)
Quarter: 2007Q1

REPORT INFORMATION
  Report Type: 
  Country: None (occurrence: None)
  Receive Date: 20070307
  Receipt Date: 20061031
  Transmission Date: 20070707
  Serious: No
  Sender: FDA-Public Use
  Company Number: US-GLAXOSMITHKLINE-A0625587A

PATIENT
  Age: 46 Year
  Sex: Female

DRUGS (7)
  1. REQUIP [Suspect]
     Indication: RESTLESS LEGS SYNDROME
     Dosage: 1MG PER DAY
     Route: 048
     Dates: start: 20060601
  2. METHADONE HCL [Concomitant]
  3. FLEXERIL [Concomitant]
  4. LOTREL [Concomitant]
  5. INDERAL [Concomitant]
  6. OMACOR [Concomitant]
  7. CRESTOR [Concomitant]

REACTIONS (3)
  - HEADACHE [None]
  - OEDEMA PERIPHERAL [None]
  - PAIN IN EXTREMITY [None]
